FAERS Safety Report 7455900-5 (Version None)
Quarter: 2011Q2

REPORT INFORMATION
  Report Type: 
  Country: None (occurrence: None)
  Receive Date: 20110503
  Receipt Date: 20110422
  Transmission Date: 20111010
  Serious: Yes (Hospitalization)
  Sender: FDA-Public Use
  Company Number: B0714932A

PATIENT
  Sex: Female

DRUGS (8)
  1. MORPHINE [Concomitant]
     Indication: PREMEDICATION
     Dates: start: 20110107
  2. SOLU-MEDROL [Concomitant]
     Indication: PREMEDICATION
     Route: 042
     Dates: start: 20110107
  3. ZOPHREN [Suspect]
     Indication: PREMEDICATION
     Route: 042
     Dates: start: 20110107, end: 20110107
  4. OXYNORM [Concomitant]
     Dates: start: 20101122
  5. DROPERIDOL [Concomitant]
     Dates: start: 20110107
  6. OXYCONTIN [Concomitant]
     Dosage: 20MG PER DAY
     Route: 048
     Dates: start: 20101122
  7. NEXIUM [Concomitant]
     Route: 065
  8. BROMAZEPAM [Concomitant]
     Route: 065

REACTIONS (2)
  - RASH [None]
  - PRURITUS [None]
